FAERS Safety Report 21858519 (Version 2)
Quarter: 2023Q1

REPORT INFORMATION
  Report Type: Spontaneous
  Country: AR (occurrence: None)
  Receive Date: 20230113
  Receipt Date: 20230125
  Transmission Date: 20230418
  Serious: Yes (Other)
  Sender: FDA-Public Use
  Company Number: AR-ROCHE-3263714

PATIENT
  Sex: Female

DRUGS (1)
  1. RITUXIMAB [Suspect]
     Active Substance: RITUXIMAB
     Indication: Mantle cell lymphoma
     Dosage: DOSE AND FREQUENCY WERE NOT REPORTED
     Route: 065

REACTIONS (3)
  - Off label use [Unknown]
  - Hypersensitivity [Unknown]
  - Cardio-respiratory arrest [Unknown]
